FAERS Safety Report 6866012-3 (Version None)
Quarter: 2010Q3

REPORT INFORMATION
  Report Type: 
  Country: None (occurrence: None)
  Receive Date: 20100722
  Receipt Date: 20100707
  Transmission Date: 20110219
  Serious: Yes (Hospitalization)
  Sender: FDA-Public Use
  Company Number: US-JNJFOC-20100702118

PATIENT
  Sex: Female
  Weight: 74.8 kg

DRUGS (10)
  1. CISAPRIDE [Suspect]
     Indication: OBSTRUCTION
     Route: 048
  2. CISAPRIDE [Suspect]
     Indication: GASTROINTESTINAL MOTILITY DISORDER
     Route: 048
  3. KEPPRA [Concomitant]
  4. ASACOL [Concomitant]
  5. SIMETHICONE [Concomitant]
  6. MYLANTA [Concomitant]
  7. NEPRO [Concomitant]
  8. FLOVENT [Concomitant]
  9. ALBUTEROL [Concomitant]
  10. MULTIVITAMINES [Concomitant]

REACTIONS (4)
  - ABDOMINAL DISTENSION [None]
  - ABDOMINAL HERNIA [None]
  - ABDOMINAL PAIN [None]
  - DIARRHOEA [None]
